FAERS Safety Report 11031907 (Version 3)
Quarter: 2015Q2

REPORT INFORMATION
  Report Type: Report from Study
  Country: US (occurrence: US)
  Receive Date: 20150415
  Receipt Date: 20150504
  Transmission Date: 20150821
  Serious: Yes (Hospitalization)
  Sender: FDA-Public Use
  Company Number: US-SA-2015SA025610

PATIENT
  Age: 51 Year
  Sex: Female

DRUGS (10)
  1. CYMBALTA [Concomitant]
     Active Substance: DULOXETINE HYDROCHLORIDE
     Dosage: STRENGTH: 30 MG
  2. DETROL [Concomitant]
     Active Substance: TOLTERODINE TARTRATE
     Dosage: FORM: EXTENDED RELEASE IN THE MORNING
  3. DEPAKOTE [Concomitant]
     Active Substance: DIVALPROEX SODIUM
     Indication: DEPRESSION
     Dosage: DOSE: 500-1000 MG EXTENDED RELEASE
  4. PREMARIN [Concomitant]
     Active Substance: ESTROGENS, CONJUGATED
  5. BENADRYL [Concomitant]
     Active Substance: DIPHENHYDRAMINE HYDROCHLORIDE
  6. ZANAFLEX [Concomitant]
     Active Substance: TIZANIDINE HYDROCHLORIDE
     Dosage: STRENGTH: 4 MG
  7. AUBAGIO [Suspect]
     Active Substance: TERIFLUNOMIDE
     Indication: MULTIPLE SCLEROSIS
     Route: 048
     Dates: start: 20150208, end: 20150420
  8. GABAPENTIN. [Concomitant]
     Active Substance: GABAPENTIN
  9. PROVIGIL [Concomitant]
     Active Substance: MODAFINIL
     Dosage: DOSE: 200-400 MG
  10. ALPRAZOLAM. [Concomitant]
     Active Substance: ALPRAZOLAM
     Indication: TREMOR
     Dosage: DOSE: UPTO 2 MG

REACTIONS (16)
  - Muscular weakness [Unknown]
  - Urinary incontinence [Unknown]
  - Crying [Recovering/Resolving]
  - Unevaluable event [Unknown]
  - Vomiting [Unknown]
  - Asthenia [Unknown]
  - Asthenia [Not Recovered/Not Resolved]
  - Diarrhoea [Unknown]
  - Product packaging issue [Unknown]
  - Insomnia [Unknown]
  - Alopecia [Recovering/Resolving]
  - Chest discomfort [Not Recovered/Not Resolved]
  - Migraine [Unknown]
  - Heart rate increased [Unknown]
  - Flatulence [Unknown]
  - Blood pressure increased [Not Recovered/Not Resolved]

NARRATIVE: CASE EVENT DATE: 2015
